FAERS Safety Report 17172161 (Version 1)
Quarter: 2019Q4

REPORT INFORMATION
  Report Type: Spontaneous
  Country: NL (occurrence: NL)
  Receive Date: 20191218
  Receipt Date: 20191218
  Transmission Date: 20200122
  Serious: Yes (Hospitalization)
  Sender: FDA-Public Use
  Company Number: NL-MYLANLABS-2019M1124380

PATIENT
  Sex: Female

DRUGS (13)
  1. MELOXICAM. [Concomitant]
     Active Substance: MELOXICAM
     Dosage: 1 X PER DAG 7,5 MILLIGRAM
  2. HYDROCORTISONE W/OXYTETRACYCLINE CALCIUM/POLY [Concomitant]
     Dosage: ZONODIG ZO NODIG 2 X PER DAG 1 DOSIS AANBRENGEN IN NEUS
  3. PANTOPRAZOLE [Suspect]
     Active Substance: PANTOPRAZOLE
     Indication: PRODUCT USED FOR UNKNOWN INDICATION
     Dosage: 1X DD 20 MG
     Route: 048
     Dates: start: 20190709, end: 20190809
  4. HYDROXOCOBALAMINE [Concomitant]
     Active Substance: HYDROXOCOBALAMIN
     Dosage: 1 X PER 2 MAANDEN 1000 MICROGRAM
  5. OXYCODON [Concomitant]
     Active Substance: OXYCODONE
     Dosage: 2 X PER DAG 10 MILLIGRAM
  6. METOPROLOL. [Concomitant]
     Active Substance: METOPROLOL
     Dosage: 1 X PER DAG 1 STUK
  7. DENOSUMAB [Concomitant]
     Active Substance: DENOSUMAB
     Dosage: VOLGENS VOORSCHRIFT 1 KEER PER 6 MAANDEN, 6 MONTH
  8. ONDANSETRON [Concomitant]
     Active Substance: ONDANSETRON
     Dosage: 1 X PER DAG 4 MILLIGRAM
  9. FOLIUMZUUR [Concomitant]
     Active Substance: FOLIC ACID
     Dosage: 1 X PER DAG 5 MILLIGRAM
  10. COLECALCIFEROL [Concomitant]
     Active Substance: CHOLECALCIFEROL
     Dosage: OP ZONDAG 0,2 MILLILITER
  11. CLONAZEPAM. [Concomitant]
     Active Substance: CLONAZEPAM
     Dosage: 1 X PER DAG 0,5 MILLIGRAM
  12. OXYCODON [Concomitant]
     Active Substance: OXYCODONE
     Dosage: ZONODIG 6 X PER DAG 5 MILLIGRAM ZONODIG TOT 6D 5MG
  13. BUMETANIDE. [Concomitant]
     Active Substance: BUMETANIDE
     Dosage: 1 X PER DAG 1 MILLIGRAM

REACTIONS (1)
  - Hypomagnesaemia [Recovering/Resolving]
